FAERS Safety Report 17066076 (Version 2)
Quarter: 2020Q4

REPORT INFORMATION
  Report Type: Spontaneous
  Country: US (occurrence: US)
  Receive Date: 20191122
  Receipt Date: 20201123
  Transmission Date: 20210113
  Serious: No
  Sender: FDA-Public Use
  Company Number: US-PERRIGO-19US010773

PATIENT
  Sex: Male
  Weight: 51.25 kg

DRUGS (17)
  1. FUROSEMIDE. [Concomitant]
     Active Substance: FUROSEMIDE
     Indication: OEDEMA
     Dosage: 20 MG
     Route: 065
  2. LISINOPRIL. [Concomitant]
     Active Substance: LISINOPRIL
     Indication: HYPERTENSION
     Dosage: UNK
     Route: 065
  3. METOPROLOL                         /00376902/ [Concomitant]
     Active Substance: METOPROLOL TARTRATE
     Indication: HYPERTENSION
     Dosage: UNK
     Route: 065
  4. WARFARIN [Concomitant]
     Active Substance: WARFARIN
     Indication: ANTICOAGULANT THERAPY
     Dosage: UNK
     Route: 065
  5. MULTIVITAMINS, PLAIN [Concomitant]
     Active Substance: VITAMINS
     Indication: SUPPLEMENTATION THERAPY
     Dosage: UNK
     Route: 065
  6. MELATONIN [Concomitant]
     Active Substance: MELATONIN
     Indication: INSOMNIA
     Dosage: 3 MG
     Route: 065
  7. OMEPRAZOLE. [Concomitant]
     Active Substance: OMEPRAZOLE
     Indication: DYSPEPSIA
     Dosage: UNK
     Route: 065
  8. ALPRAZOLAM. [Concomitant]
     Active Substance: ALPRAZOLAM
     Indication: ANXIETY
     Dosage: UNK
     Route: 065
  9. CITRACAL                           /00751520/ [Suspect]
     Active Substance: CALCIUM CITRATE
     Indication: SUPPLEMENTATION THERAPY
     Dosage: 400 MG, QD
     Route: 048
     Dates: start: 202002
  10. DICYCLOMINE                        /00068601/ [Concomitant]
     Active Substance: DICYCLOMINE HYDROCHLORIDE
     Indication: IRRITABLE BOWEL SYNDROME
     Dosage: UNK
     Route: 065
  11. LATANOPROST. [Concomitant]
     Active Substance: LATANOPROST
     Indication: GLAUCOMA
     Dosage: UNK
     Route: 065
  12. VITAMIN D3 [Concomitant]
     Active Substance: CHOLECALCIFEROL
     Indication: SUPPLEMENTATION THERAPY
     Dosage: UNK
     Route: 065
  13. POLYETHYLENE GLYCOL 3350. [Suspect]
     Active Substance: POLYETHYLENE GLYCOL 3350
     Indication: ABNORMAL FAECES
     Dosage: 17 G, QD
     Route: 048
     Dates: start: 2014, end: 20200305
  14. SIMVASTATIN. [Concomitant]
     Active Substance: SIMVASTATIN
     Indication: BLOOD CHOLESTEROL INCREASED
     Dosage: UNK
     Route: 065
  15. GAS-X [Concomitant]
     Active Substance: DIMETHICONE
     Indication: FLATULENCE
     Dosage: UNK
     Route: 065
  16. AMLODIPINE [Concomitant]
     Active Substance: AMLODIPINE BESYLATE
     Indication: ANGINA PECTORIS
     Dosage: 25 MG
     Route: 065
  17. PREVIDENT [Concomitant]
     Active Substance: SODIUM FLUORIDE
     Indication: GINGIVAL RECESSION
     Dosage: UNK
     Route: 065

REACTIONS (3)
  - Incorrect product administration duration [Recovered/Resolved]
  - Frequent bowel movements [Not Recovered/Not Resolved]
  - Diarrhoea [Not Recovered/Not Resolved]

NARRATIVE: CASE EVENT DATE: 2014
